FAERS Safety Report 8140565-X (Version None)
Quarter: 2012Q1

REPORT INFORMATION
  Report Type: 
  Country: None (occurrence: None)
  Receive Date: 20120216
  Receipt Date: 20120213
  Transmission Date: 20120608
  Serious: Yes (Other)
  Sender: FDA-Public Use
  Company Number: GB-PFIZER INC-2011303061

PATIENT
  Age: 25 Year
  Sex: Female

DRUGS (5)
  1. VALPROIC ACID [Concomitant]
     Indication: EPILEPSY
     Dosage: 700 MG MANE AND 1000 MG EVENING
     Route: 048
     Dates: start: 19910101
  2. MIDAZOLAM [Concomitant]
     Dosage: 5-10 MG ONCE DAILY AS NEEDED
     Route: 002
  3. PREGABALIN [Suspect]
     Indication: EPILEPSY
     Dosage: 150 MG, 2X/DAY
     Route: 048
     Dates: start: 20090701
  4. TEGRETOL [Concomitant]
     Indication: EPILEPSY
     Dosage: 700 MG, 2X/DAY
     Route: 048
     Dates: start: 19860101
  5. LEVETIRACETAM [Concomitant]
     Indication: EPILEPSY
     Dosage: 1.5 G, 2X/DAY
     Route: 048
     Dates: start: 20020101

REACTIONS (2)
  - GAIT DISTURBANCE [None]
  - GAZE PALSY [None]
